FAERS Safety Report 24211139 (Version 1)
Quarter: 2024Q3

REPORT INFORMATION
  Report Type: Spontaneous
  Country: CN (occurrence: CN)
  Receive Date: 20240814
  Receipt Date: 20240814
  Transmission Date: 20241016
  Serious: Yes (Other)
  Sender: EISAI
  Company Number: CN-Eisai-EC-2024-171736

PATIENT
  Age: 51 Year
  Sex: Female

DRUGS (3)
  1. LENVATINIB [Suspect]
     Active Substance: LENVATINIB
     Indication: Cholangiocarcinoma
     Route: 048
     Dates: start: 20220916
  2. GEMCITABINE HYDROCHLORIDE\OXALIPLATIN [Concomitant]
     Active Substance: GEMCITABINE HYDROCHLORIDE\OXALIPLATIN
     Indication: Cholangiocarcinoma
     Dosage: GEMCITABINE 1000 MG/M2, IV, D1, D8/3W ?OXALIPLATIN 125 MG/M2, IV, D2/3W
     Route: 065
     Dates: start: 20220916
  3. TISLELIZUMAB [Concomitant]
     Active Substance: TISLELIZUMAB
     Indication: Cholangiocarcinoma
     Dosage: GEMCITABINE 1000 MG/M2, IV, D1, D8/3W ?OXALIPLATIN 125 MG/M2, IV, D2/3W
     Route: 041
     Dates: start: 20220916

REACTIONS (6)
  - Drug-induced liver injury [Recovered/Resolved]
  - Decreased appetite [Recovered/Resolved]
  - Nausea [Recovered/Resolved]
  - Peripheral sensory neuropathy [Recovered/Resolved]
  - Thrombocytopenia [Recovered/Resolved]
  - Neutropenia [Recovered/Resolved]
